FAERS Safety Report 10177752 (Version 1)
Quarter: 2014Q2

REPORT INFORMATION
  Report Type: Spontaneous
  Country: US (occurrence: US)
  Receive Date: 20140516
  Receipt Date: 20140516
  Transmission Date: 20141212
  Serious: Yes (Hospitalization)
  Sender: FDA-Public Use
  Company Number: US-SANOFI-AVENTIS-2013SA060826

PATIENT
  Age: 57 Year
  Sex: Male

DRUGS (2)
  1. APIDRA [Suspect]
     Indication: DIABETES MELLITUS
  2. NOVOLOG [Concomitant]

REACTIONS (2)
  - Hyperglycaemia [Recovering/Resolving]
  - Drug ineffective [Unknown]
